FAERS Safety Report 5093609-6 (Version None)
Quarter: 2006Q3

REPORT INFORMATION
  Report Type: 
  Country: None (occurrence: None)
  Receive Date: 20060829
  Receipt Date: 20060814
  Transmission Date: 20061208
  Serious: Yes (Hospitalization)
  Sender: FDA-Public Use
  Company Number: 2006PV019416

PATIENT
  Age: 72 Year
  Sex: Male
  Weight: 97.5234 kg

DRUGS (3)
  1. BYETTA [Suspect]
     Dosage: 10 MCG; BID; SC;  5 MCG; BID; SC
     Route: 058
     Dates: start: 20060101, end: 20060201
  2. BYETTA [Suspect]
     Dosage: 10 MCG; BID; SC;  5 MCG; BID; SC
     Route: 058
     Dates: start: 20060101
  3. LANTUS [Concomitant]

REACTIONS (11)
  - BALANCE DISORDER [None]
  - BLOOD GLUCOSE DECREASED [None]
  - BURSITIS [None]
  - COLLAPSE OF LUNG [None]
  - DIZZINESS POSTURAL [None]
  - GAIT DISTURBANCE [None]
  - NAUSEA [None]
  - TENDONITIS [None]
  - THROMBOSIS [None]
  - TREMOR [None]
  - WEIGHT DECREASED [None]
